FAERS Safety Report 4878513-8 (Version None)
Quarter: 2006Q1

REPORT INFORMATION
  Report Type: 
  Country: None (occurrence: None)
  Receive Date: 20060110
  Receipt Date: 20060110
  Transmission Date: 20060701
  Serious: Yes (Other)
  Sender: FDA-Public Use
  Company Number: None

PATIENT
  Age: 51 Year
  Sex: Male

DRUGS (2)
  1. METFORMIN APOTEX [Suspect]
     Indication: HYPERGLYCAEMIA
     Dosage: 500 MG TAKE 1 TABLET TWICE A DAY WITH MEALS
     Dates: start: 20051120, end: 20051230
  2. LITIPOR [Concomitant]

REACTIONS (3)
  - BLOOD GLUCOSE INCREASED [None]
  - CONDITION AGGRAVATED [None]
  - PHARMACEUTICAL PRODUCT COMPLAINT [None]
